FAERS Safety Report 9015699 (Version 1)
Quarter: 2013Q1

REPORT INFORMATION
  Report Type: Spontaneous
  Country: CN (occurrence: None)
  Receive Date: 20130102
  Receipt Date: 20130102
  Transmission Date: 20140127
  Serious: Yes (Other)
  Sender: FDA-Public Use
  Company Number: VAL_01223_2012

PATIENT
  Age: 56 Year
  Sex: Female
  Weight: 65 kg

DRUGS (1)
  1. LOTENSIN [Suspect]
     Indication: HYPERTENSION
     Route: 048
     Dates: start: 20090831, end: 20090831

REACTIONS (4)
  - Anaphylactoid reaction [None]
  - Palpitations [None]
  - Erythema [None]
  - Pyrexia [None]
